FAERS Safety Report 7920400-2 (Version None)
Quarter: 2011Q4

REPORT INFORMATION
  Report Type: 
  Country: None (occurrence: None)
  Receive Date: 20111117
  Receipt Date: 20111110
  Transmission Date: 20120403
  Serious: Yes (Hospitalization)
  Sender: FDA-Public Use
  Company Number: FR-ELI_LILLY_AND_COMPANY-FR201111003143

PATIENT
  Age: 60 Year
  Sex: Female

DRUGS (2)
  1. ALIMTA [Suspect]
     Indication: LUNG CANCER METASTATIC
     Dosage: 820 MG, UNK
     Dates: start: 20110616, end: 20110616
  2. CARBOPLATIN [Concomitant]
     Indication: LUNG CANCER METASTATIC
     Dosage: UNK
     Dates: start: 20110616

REACTIONS (6)
  - CYTOLYTIC HEPATITIS [None]
  - VOMITING [None]
  - DIARRHOEA [None]
  - NAUSEA [None]
  - TRANSAMINASES INCREASED [None]
  - ABDOMINAL PAIN UPPER [None]
